FAERS Safety Report 6094972-X (Version None)
Quarter: 2009Q1

REPORT INFORMATION
  Report Type: 
  Country: None (occurrence: None)
  Receive Date: 20090227
  Receipt Date: 20090216
  Transmission Date: 20090719
  Serious: Yes (Other)
  Sender: FDA-Public Use
  Company Number: DE-PFIZER INC-2009156788

PATIENT

DRUGS (2)
  1. ZYVOXID [Suspect]
     Indication: INFECTION
     Dosage: 30 MG, 2X/DAY
     Route: 048
     Dates: start: 20090118, end: 20090118
  2. ZYVOXID [Suspect]
     Dosage: 8 MG, 3X/DAY
     Dates: start: 20090109, end: 20090202

REACTIONS (3)
  - BRADYCARDIA NEONATAL [None]
  - INCORRECT DOSE ADMINISTERED [None]
  - INFANTILE APNOEIC ATTACK [None]
